FAERS Safety Report 7753115-4 (Version None)
Quarter: 2011Q3

REPORT INFORMATION
  Report Type: 
  Country: None (occurrence: None)
  Receive Date: 20110915
  Receipt Date: 20110913
  Transmission Date: 20111222
  Serious: Yes (Hospitalization, Other)
  Sender: FDA-Public Use
  Company Number: US-PFIZER INC-2011158418

PATIENT
  Sex: Female

DRUGS (24)
  1. CHANTIX [Suspect]
     Indication: SMOKING CESSATION THERAPY
     Dosage: STARTER PACK
     Dates: start: 20090328, end: 20090721
  2. CLONAZEPAM [Concomitant]
     Indication: ANXIETY
  3. SULFAMETHOXAZOLE AND TRIMETHOPRIM [Concomitant]
     Indication: INFECTION
     Dosage: UNK
     Dates: start: 20020610, end: 20091108
  4. NAPROXEN [Concomitant]
     Indication: PAIN MANAGEMENT
     Dosage: UNK
     Dates: start: 20050601, end: 20101022
  5. FAMOTIDINE [Concomitant]
     Indication: GASTRIC ULCER
     Dosage: UNK
     Dates: start: 20010714, end: 20100729
  6. ALBUTEROL [Concomitant]
     Indication: ASTHMA
     Dosage: UNK
     Dates: start: 20070102, end: 20100521
  7. ADVAIR DISKUS 100/50 [Concomitant]
     Indication: ASTHMA
     Dosage: UNK
     Dates: start: 20011010, end: 20101110
  8. TRITUSS-ER [Concomitant]
     Indication: NASOPHARYNGITIS
     Dosage: UNK
     Dates: start: 20050720, end: 20100316
  9. DIAZEPAM [Concomitant]
     Indication: ANXIETY
     Dosage: UNK
     Dates: start: 20060825, end: 20100801
  10. OXYCODONE HCL AND ACETAMINOPHEN [Concomitant]
     Indication: PAIN MANAGEMENT
     Dosage: UNK
     Dates: start: 20061010, end: 20091223
  11. SEROQUEL [Concomitant]
     Indication: BIPOLAR DISORDER
     Dosage: UNK
     Dates: start: 20080624, end: 20100823
  12. PREDNISONE [Concomitant]
     Indication: INFLAMMATION
     Dosage: UNK
     Dates: start: 20010123, end: 20101022
  13. SINGULAIR [Concomitant]
     Indication: ASTHMA
     Dosage: UNK
     Dates: start: 20050316, end: 20101020
  14. OXYCODONE AND ACETAMINOPHEN [Concomitant]
     Indication: PAIN MANAGEMENT
     Dosage: UNK
     Dates: start: 20060119, end: 20101022
  15. CARISOPRODOL [Concomitant]
     Indication: PAIN MANAGEMENT
     Dosage: UNK
     Dates: start: 20060822, end: 20100413
  16. CLONAZEPAM [Concomitant]
     Indication: PANIC DISORDER
     Dosage: UNK
     Dates: start: 20010221, end: 20091104
  17. ALBUTEROL [Concomitant]
     Indication: BRONCHOSPASM
     Dosage: UNK
     Dates: start: 20010312, end: 20091029
  18. NAPROXEN [Concomitant]
     Indication: INFLAMMATION
  19. CEPHALEXIN [Concomitant]
     Indication: INFECTION
     Dosage: UNK
     Dates: start: 20081110, end: 20100712
  20. PREMARIN [Concomitant]
     Indication: MENOPAUSAL SYMPTOMS
     Dosage: UNK
     Dates: start: 20010126, end: 20101022
  21. MUPIROCIN [Concomitant]
     Indication: INFECTION
     Dosage: UNK
     Dates: start: 20060123, end: 20101009
  22. GABAPENTIN [Concomitant]
     Indication: PAIN MANAGEMENT
     Dosage: UNK
     Dates: start: 20060825, end: 20101020
  23. FLUOXETINE [Concomitant]
     Indication: DEPRESSION
     Dosage: UNK
     Dates: start: 20011029, end: 20101020
  24. PHENOBARBITAL [Concomitant]
     Indication: INSOMNIA
     Dosage: UNK
     Dates: start: 20090703, end: 20090803

REACTIONS (2)
  - SUICIDE ATTEMPT [None]
  - INTENTIONAL OVERDOSE [None]
